FAERS Safety Report 24209256 (Version 2)
Quarter: 2025Q1

REPORT INFORMATION
  Report Type: Report from Study
  Country: CA (occurrence: CA)
  Receive Date: 20240814
  Receipt Date: 20250326
  Transmission Date: 20250408
  Serious: Yes (Other)
  Sender: PFIZER
  Company Number: CA-TAKEDA-2021TUS023546

PATIENT
  Age: 72 Year
  Sex: Male

DRUGS (17)
  1. PANTOPRAZOLE SODIUM [Suspect]
     Active Substance: PANTOPRAZOLE SODIUM
     Route: 065
  2. ENTYVIO [Suspect]
     Active Substance: VEDOLIZUMAB
     Indication: Crohn^s disease
     Route: 042
     Dates: start: 20200206
  3. ENTYVIO [Suspect]
     Active Substance: VEDOLIZUMAB
     Route: 042
     Dates: start: 20210411
  4. ENTYVIO [Suspect]
     Active Substance: VEDOLIZUMAB
     Route: 042
  5. ENTYVIO [Suspect]
     Active Substance: VEDOLIZUMAB
     Route: 042
  6. ENTYVIO [Suspect]
     Active Substance: VEDOLIZUMAB
     Route: 042
  7. PINAVERIUM BROMIDE [Concomitant]
     Active Substance: PINAVERIUM BROMIDE
     Route: 048
  8. ASPIRIN [Concomitant]
     Active Substance: ASPIRIN
     Route: 048
  9. SENOKOT [Concomitant]
     Active Substance: SENNOSIDES
     Route: 048
  10. CHOLECALCIFEROL [Concomitant]
     Active Substance: CHOLECALCIFEROL
  11. CALCIUM [Concomitant]
     Active Substance: CALCIUM
  12. VITAMIN K [Concomitant]
     Active Substance: PHYTONADIONE
     Route: 048
  13. FINASTERIDE [Concomitant]
     Active Substance: FINASTERIDE
     Route: 048
  14. TADALAFIL [Concomitant]
     Active Substance: TADALAFIL
     Route: 048
  15. EDOXABAN [Concomitant]
     Active Substance: EDOXABAN
  16. JARDIANCE [Concomitant]
     Active Substance: EMPAGLIFLOZIN
  17. VALSARTAN [Concomitant]
     Active Substance: VALSARTAN
     Route: 048

REACTIONS (1)
  - Hypertension [Unknown]
